FAERS Safety Report 9279179 (Version 1)
Quarter: 2013Q2

REPORT INFORMATION
  Report Type: Spontaneous
  Country: US (occurrence: US)
  Receive Date: 20130508
  Receipt Date: 20130508
  Transmission Date: 20140414
  Serious: No
  Sender: FDA-Public Use
  Company Number: US-ASTRAZENECA-2013SE25692

PATIENT
  Age: 73 Year
  Sex: Female
  Weight: 99.8 kg

DRUGS (16)
  1. NEXIUM [Suspect]
     Indication: GASTROOESOPHAGEAL REFLUX DISEASE
     Dosage: DAILY
     Route: 048
     Dates: start: 2006
  2. LEVOTHYROXINE [Concomitant]
     Indication: THYROID DISORDER
  3. GABAPENTIN [Concomitant]
  4. BACLOFEN [Concomitant]
  5. OXYCONTIN [Concomitant]
  6. ROPINIROLE [Concomitant]
     Indication: RESTLESS LEGS SYNDROME
  7. ALLOPURINOL [Concomitant]
  8. PREDISONE [Concomitant]
  9. VESICARE [Concomitant]
  10. FUROSEMIDE [Concomitant]
  11. POTASSIUM [Concomitant]
  12. FOLIC ACID [Concomitant]
  13. DIOVAN [Concomitant]
  14. PROMETHAZINE [Concomitant]
     Indication: NAUSEA
  15. PATANOL EYE DROPS [Concomitant]
     Route: 050
  16. ORENCIA [Concomitant]
     Dosage: MONTH
     Route: 042

REACTIONS (3)
  - Laryngitis [Not Recovered/Not Resolved]
  - Nausea [Unknown]
  - Intentional drug misuse [Unknown]
